FAERS Safety Report 8536620-2 (Version None)
Quarter: 2012Q3

REPORT INFORMATION
  Report Type: 
  Country: None (occurrence: None)
  Receive Date: 20120725
  Receipt Date: 20120722
  Transmission Date: 20120928
  Serious: Yes (Other)
  Sender: FDA-Public Use
  Company Number: SK-PFIZER INC-2012127897

PATIENT
  Sex: Female

DRUGS (7)
  1. VERAPAMIL [Concomitant]
  2. HYDROCHLOROTHIAZIDE [Concomitant]
  3. PREDNISONE [Concomitant]
     Dosage: 20 MG, UNK
  4. GOPTEN ^ABBOTT^ [Concomitant]
     Dosage: 2 MG, 1X/DAY
     Dates: start: 20110707
  5. SUNITINIB MALATE [Suspect]
     Dosage: UNK
     Dates: start: 20100622, end: 20120517
  6. MAGNESIUM [Concomitant]
  7. FAKTU [Concomitant]

REACTIONS (1)
  - PULMONARY TOXICITY [None]
